FAERS Safety Report 9942784 (Version 1)
Quarter: 2014Q1

REPORT INFORMATION
  Report Type: Report from Study
  Country: US (occurrence: US)
  Receive Date: 20140303
  Receipt Date: 20140303
  Transmission Date: 20141002
  Serious: No
  Sender: FDA-Public Use
  Company Number: US-ABBVIE-13P-163-1045927-00

PATIENT
  Age: 62 Year
  Sex: Female

DRUGS (8)
  1. HUMIRA [Suspect]
     Indication: CROHN^S DISEASE
     Dates: start: 20130125, end: 20130125
  2. HUMIRA [Suspect]
     Dates: start: 20130126
  3. GENERIC AMARYL [Concomitant]
     Indication: PRODUCT USED FOR UNKNOWN INDICATION
     Dosage: IN AM AND IN PM
  4. PROTONIX [Concomitant]
     Indication: PRODUCT USED FOR UNKNOWN INDICATION
  5. IMURAN [Concomitant]
     Indication: PRODUCT USED FOR UNKNOWN INDICATION
  6. MAXZIDE [Concomitant]
     Indication: PRODUCT USED FOR UNKNOWN INDICATION
  7. DONNATAL [Concomitant]
     Indication: ABDOMINAL PAIN UPPER
     Dosage: AS NEEDED
  8. HYDROCODONE [Concomitant]
     Indication: PAIN
     Dosage: 10/650MG

REACTIONS (1)
  - Injection site bruising [Recovering/Resolving]
